FAERS Safety Report 17685963 (Version 1)
Quarter: 2020Q2

REPORT INFORMATION
  Report Type: Spontaneous
  Country: MO (occurrence: MO)
  Receive Date: 20200420
  Receipt Date: 20200420
  Transmission Date: 20200714
  Serious: Yes (Other)
  Sender: FDA-Public Use
  Company Number: MO-BRISTOL-MYERS SQUIBB COMPANY-BMS-2020-028748

PATIENT

DRUGS (1)
  1. OPDIVO [Suspect]
     Active Substance: NIVOLUMAB
     Indication: HEPATOCELLULAR CARCINOMA
     Dosage: UNK
     Route: 065

REACTIONS (4)
  - Seizure [Unknown]
  - Guillain-Barre syndrome [Unknown]
  - Metastases to central nervous system [Unknown]
  - Hepatic function abnormal [Unknown]
